FAERS Safety Report 6684289-4 (Version None)
Quarter: 2010Q2

REPORT INFORMATION
  Report Type: 
  Country: None (occurrence: None)
  Receive Date: 20100416
  Receipt Date: 20100405
  Transmission Date: 20101027
  Serious: Yes (Other)
  Sender: FDA-Public Use
  Company Number: PHHY2010JP21348

PATIENT

DRUGS (1)
  1. ZOMETA [Suspect]
     Dosage: UNK
     Route: 042
     Dates: start: 20090701

REACTIONS (4)
  - INSOMNIA [None]
  - METASTASES TO BONE [None]
  - OSTEONECROSIS [None]
  - PAIN [None]
